FAERS Safety Report 7070057-0 (Version None)
Quarter: 2010Q4

REPORT INFORMATION
  Report Type: 
  Country: None (occurrence: None)
  Receive Date: 20101028
  Receipt Date: 20100831
  Transmission Date: 20110411
  Serious: No
  Sender: FDA-Public Use
  Company Number: US-WYE-H17135110

PATIENT
  Age: 62 Year
  Sex: Male
  Weight: 89.89 kg

DRUGS (1)
  1. ADVIL [Suspect]
     Indication: BACK PAIN
     Route: 048
     Dates: start: 20100820, end: 20100822

REACTIONS (1)
  - DRUG EFFECT DECREASED [None]
